FAERS Safety Report 18633230 (Version 1)
Quarter: 2020Q4

REPORT INFORMATION
  Report Type: Spontaneous
  Country: US (occurrence: US)
  Receive Date: 20201217
  Receipt Date: 20201217
  Transmission Date: 20210114
  Serious: Yes (Hospitalization)
  Sender: FDA-Public Use
  Company Number: None

PATIENT
  Age: 72 Year
  Sex: Female
  Weight: 54 kg

DRUGS (19)
  1. WARFARIN [Suspect]
     Active Substance: WARFARIN
     Indication: DEEP VEIN THROMBOSIS
     Route: 048
     Dates: start: 20140822
  2. SULFASALAZINE 500 MG [Concomitant]
     Active Substance: SULFASALAZINE
  3. BACLOFEN 10 MG [Concomitant]
     Active Substance: BACLOFEN
  4. TORSEMIDE 20 MG [Concomitant]
  5. FORMOTEROL 20 MCG/2ML [Concomitant]
  6. ALPRAZOLAM 0.5 MG [Concomitant]
     Active Substance: ALPRAZOLAM
  7. POTASSIUM CHLORIDE 20 MEQ [Concomitant]
  8. VITAMIN D2 [Concomitant]
     Active Substance: ERGOCALCIFEROL
  9. ALBUTEROL NEBULIZER SOLUTION 2.5 MG/3ML [Concomitant]
  10. QUETIAPINE 300 MG [Concomitant]
     Active Substance: QUETIAPINE
  11. FLUTICASONE. [Concomitant]
     Active Substance: FLUTICASONE
  12. VENTOLIN INHALER 90 MCG [Concomitant]
  13. MIRTAZAPINE 45 MG [Concomitant]
  14. ESOPMEPRAZOLE 40 MG [Concomitant]
  15. MEMANTINE 21 MG [Concomitant]
  16. LEVOTHYROXINE 112 MCG [Concomitant]
     Active Substance: LEVOTHYROXINE
  17. TRAMADOL 50 MG [Concomitant]
     Active Substance: TRAMADOL
  18. FERROUS SULFATE 325 MG [Concomitant]
  19. FUROSEMIDE 40 MG [Concomitant]
     Active Substance: FUROSEMIDE

REACTIONS (8)
  - Therapy interrupted [None]
  - Fall [None]
  - International normalised ratio decreased [None]
  - Dyspnoea [None]
  - International normalised ratio increased [None]
  - Dizziness [None]
  - Epistaxis [None]
  - Fatigue [None]

NARRATIVE: CASE EVENT DATE: 20201204
